FAERS Safety Report 20819053 (Version 2)
Quarter: 2022Q2

REPORT INFORMATION
  Report Type: Spontaneous
  Country: PS (occurrence: PS)
  Receive Date: 20220512
  Receipt Date: 20220517
  Transmission Date: 20220721
  Serious: Yes (Death, Life-Threatening, Hospitalization, Other)
  Sender: FDA-Public Use
  Company Number: PS-PFIZER INC-202200675308

PATIENT
  Age: 34 Year
  Sex: Female

DRUGS (5)
  1. METHYLPREDNISOLONE [Suspect]
     Active Substance: METHYLPREDNISOLONE
     Indication: Cellulitis orbital
     Dosage: 1 G, 1X/DAY
  2. METHYLPREDNISOLONE [Suspect]
     Active Substance: METHYLPREDNISOLONE
     Indication: Optic neuritis
  3. VANCOMYCIN [Concomitant]
     Active Substance: VANCOMYCIN
     Indication: Cellulitis orbital
     Dosage: 1 G, 2X/DAY
  4. PIPERACILLIN AND TAZOBACTAM [Concomitant]
     Active Substance: PIPERACILLIN SODIUM\TAZOBACTAM SODIUM
     Indication: Cellulitis orbital
     Dosage: 4.5 G, 4X/DAY
  5. ENOXAPARIN [Concomitant]
     Active Substance: ENOXAPARIN
     Indication: Cellulitis orbital
     Dosage: 80 MG, 2X/DAY

REACTIONS (1)
  - Diabetic ketoacidosis [Fatal]
